FAERS Safety Report 7665754 (Version 4)
Quarter: 2014Q2

REPORT INFORMATION
  Report Type: Spontaneous
  Country: US (occurrence: US)
  Receive Date: 20101112
  Receipt Date: 20131024
  Transmission Date: 20141212
  Serious: Yes (Hospitalization, Other)
  Sender: FDA-Public Use
  Company Number: US-PFIZER INC-2010139826

PATIENT
  Age: 3 Year
  Sex: Male

DRUGS (2)
  1. DILANTIN [Suspect]
     Indication: CONVULSION
     Dosage: 50 MG, 2X/DAY (INFATABS, ONE EVERY 12 HRS)
     Dates: start: 1995
  2. DILANTIN [Suspect]
     Indication: CONVULSION
     Dosage: UNK
     Route: 042
     Dates: start: 19950929

REACTIONS (1)
  - Stevens-Johnson syndrome [Unknown]
